FAERS Safety Report 8095532-1 (Version None)
Quarter: 2012Q1

REPORT INFORMATION
  Report Type: 
  Country: None (occurrence: None)
  Receive Date: 20120129
  Receipt Date: 20111229
  Transmission Date: 20120608
  Serious: No
  Sender: FDA-Public Use
  Company Number: US-ABBOTT-11P-163-0887740-00

PATIENT
  Age: 72 Year
  Sex: Male

DRUGS (10)
  1. CALCIUM CITRATE [Concomitant]
     Indication: MINERAL SUPPLEMENTATION
     Dosage: 2 TABLETS DAILY
     Route: 048
  2. ZOCOR [Concomitant]
     Indication: BLOOD CHOLESTEROL INCREASED
     Dosage: TAKEN IN THE PM
     Route: 048
  3. ASPIRIN [Concomitant]
     Indication: ANGIOPATHY
     Route: 048
  4. OMEGA FISH OIL [Concomitant]
     Indication: PRODUCT USED FOR UNKNOWN INDICATION
     Dosage: TAKEN IN THE AM AND PM
     Route: 048
  5. NIFEDIPINE [Concomitant]
     Indication: ILL-DEFINED DISORDER
     Route: 048
  6. HUMIRA [Suspect]
     Indication: PSORIASIS
     Dates: start: 20111211, end: 20111211
  7. HUMIRA [Suspect]
     Dates: start: 20111218
  8. NABUMETONE [Concomitant]
     Indication: INFLAMMATION
     Dosage: TAKEN IN AM AND PM
     Route: 048
  9. CYCLOBENZAPRINE [Concomitant]
     Indication: MUSCLE SPASMS
     Dosage: TAKEN IN THE AM AND PM
     Route: 048
  10. HYZAAR [Concomitant]
     Indication: HYPERTENSION
     Dosage: 100-25 MG DAILY IN AM
     Route: 048

REACTIONS (1)
  - PRURITUS [None]
